FAERS Safety Report 17153204 (Version 1)
Quarter: 2019Q4

REPORT INFORMATION
  Report Type: Spontaneous
  Country: US (occurrence: US)
  Receive Date: 20191213
  Receipt Date: 20191213
  Transmission Date: 20200122
  Serious: No
  Sender: FDA-Public Use
  Company Number: US-JNJFOC-20191208668

PATIENT
  Age: 21 Year
  Sex: Female
  Weight: 90.8 kg

DRUGS (1)
  1. WOMENS ROGAINE UNSCENTED [Suspect]
     Active Substance: MINOXIDIL
     Indication: ALOPECIA
     Dosage: 1 PUMP?THE PATIENT USED THE PRODUCT FOR LAST TIME ON 02-DEC-2019.
     Route: 061
     Dates: start: 20191128

REACTIONS (2)
  - Rash pruritic [Recovered/Resolved]
  - Incorrect dose administered [Unknown]

NARRATIVE: CASE EVENT DATE: 20191128
